FAERS Safety Report 5331097-2 (Version None)
Quarter: 2007Q2

REPORT INFORMATION
  Report Type: 
  Country: None (occurrence: None)
  Receive Date: 20070522
  Receipt Date: 20070515
  Transmission Date: 20071010
  Serious: Yes (Hospitalization)
  Sender: FDA-Public Use
  Company Number: US-BRISTOL-MYERS SQUIBB COMPANY-13781075

PATIENT
  Age: 57 Year
  Sex: Female

DRUGS (3)
  1. TEQUIN [Suspect]
     Dates: start: 20050210, end: 20050218
  2. DICYCLOMINE [Concomitant]
  3. CEPHALEXIN [Concomitant]

REACTIONS (4)
  - DEHYDRATION [None]
  - DIABETES MELLITUS [None]
  - DIABETIC KETOACIDOSIS [None]
  - HYPERGLYCAEMIA [None]
